FAERS Safety Report 7414438-1 (Version None)
Quarter: 2011Q2

REPORT INFORMATION
  Report Type: 
  Country: None (occurrence: None)
  Receive Date: 20110414
  Receipt Date: 20110112
  Transmission Date: 20111010
  Serious: Yes (Other)
  Sender: FDA-Public Use
  Company Number: US-BAYER-201037527NA

PATIENT
  Age: 20 Year
  Sex: Female
  Weight: 84.807 kg

DRUGS (1)
  1. YAZ [Suspect]
     Indication: CONTRACEPTION
     Route: 048
     Dates: start: 20080902, end: 20081010

REACTIONS (1)
  - PORTAL VEIN THROMBOSIS [None]
